FAERS Safety Report 4815499-6 (Version None)
Quarter: 2005Q4

REPORT INFORMATION
  Report Type: 
  Country: None (occurrence: None)
  Receive Date: 20051028
  Receipt Date: 20051028
  Transmission Date: 20060501
  Serious: Yes (Hospitalization)
  Sender: FDA-Public Use
  Company Number: None

PATIENT
  Age: 58 Year
  Sex: Male
  Weight: 127.9144 kg

DRUGS (2)
  1. SIMVASTATIN [Suspect]
     Dosage: 80 MG DAILY PO
     Route: 048
     Dates: start: 20051018, end: 20051024
  2. GEMFIBROZIL [Suspect]
     Dosage: 600 MG BID PO
     Route: 048
     Dates: start: 19970630, end: 20051024

REACTIONS (1)
  - DRUG TOXICITY [None]
